FAERS Safety Report 17658952 (Version 2)
Quarter: 2020Q2

REPORT INFORMATION
  Report Type: Report from Study
  Country: GB (occurrence: GB)
  Receive Date: 20200413
  Receipt Date: 20200423
  Transmission Date: 20200713
  Serious: Yes (Hospitalization)
  Sender: FDA-Public Use
  Company Number: GB-ACCORD-178266

PATIENT
  Age: 78 Year
  Sex: Female

DRUGS (38)
  1. FLUCLOXACILLIN [Concomitant]
     Active Substance: FLUCLOXACILLIN
     Indication: SUPERINFECTION
     Route: 048
     Dates: start: 20160630, end: 20160707
  2. GLYCEROL [Concomitant]
     Active Substance: GLYCERIN
     Indication: CONSTIPATION PROPHYLAXIS
     Dosage: PR
     Route: 054
     Dates: start: 20150819
  3. DENOSUMAB [Suspect]
     Active Substance: DENOSUMAB
     Indication: BREAST CANCER METASTATIC
     Route: 042
     Dates: start: 20150530, end: 20150728
  4. ACETYLSALICYLIC ACID [Concomitant]
     Active Substance: ASPIRIN
     Route: 048
     Dates: start: 20160403, end: 20160412
  5. RAMIPRIL. [Concomitant]
     Active Substance: RAMIPRIL
     Route: 048
     Dates: start: 20150519, end: 20160412
  6. PARACETAMOL [Concomitant]
     Active Substance: ACETAMINOPHEN
     Indication: LOWER RESPIRATORY TRACT INFECTION
     Route: 048
     Dates: start: 20160303
  7. TRIMETHOPRIM. [Concomitant]
     Active Substance: TRIMETHOPRIM
     Route: 048
     Dates: start: 20160411
  8. TRAMADOL. [Concomitant]
     Active Substance: TRAMADOL
     Indication: CELLULITIS
     Route: 048
     Dates: start: 20150716
  9. CLARITHROMYCIN. [Concomitant]
     Active Substance: CLARITHROMYCIN
     Indication: LOWER RESPIRATORY TRACT INFECTION
     Route: 042
     Dates: start: 20160305, end: 201603
  10. SIMVASTATIN. [Concomitant]
     Active Substance: SIMVASTATIN
     Route: 048
     Dates: start: 20150519, end: 20160412
  11. MACROGOL/MACROGOL STEARATE [Concomitant]
     Active Substance: POLYETHYLENE GLYCOLS
     Indication: CONSTIPATION PROPHYLAXIS
     Route: 048
     Dates: start: 20150819
  12. ATORVASTATIN [Concomitant]
     Active Substance: ATORVASTATIN
     Route: 048
     Dates: start: 20160412
  13. FLUCLOXACILLIN [Concomitant]
     Active Substance: FLUCLOXACILLIN
     Indication: SUPERINFECTION
     Route: 048
     Dates: start: 20160303, end: 201603
  14. ANASTROZOLE. [Suspect]
     Active Substance: ANASTROZOLE
     Indication: BREAST CANCER METASTATIC
     Route: 048
     Dates: start: 20160113
  15. SENNA ALEXANDRINA [Concomitant]
     Active Substance: SENNA LEAF
     Indication: LOWER RESPIRATORY TRACT INFECTION
     Route: 048
     Dates: start: 201603
  16. TAZOCIN [Concomitant]
     Active Substance: PIPERACILLIN SODIUM\TAZOBACTAM SODIUM
     Indication: LOWER RESPIRATORY TRACT INFECTION
     Route: 042
     Dates: start: 20160305, end: 201603
  17. OMEPRAZOLE. [Concomitant]
     Active Substance: OMEPRAZOLE
     Route: 048
     Dates: start: 20150519, end: 20160412
  18. METRONIDAZOLE. [Concomitant]
     Active Substance: METRONIDAZOLE
     Indication: TOOTH EXTRACTION
     Route: 048
     Dates: end: 20150916
  19. CODEINE PHOSPHATE/PARACETAMOL [Concomitant]
     Active Substance: ACETAMINOPHEN\CODEINE PHOSPHATE
     Route: 048
     Dates: start: 201604
  20. LANSOPRAZOLE. [Concomitant]
     Active Substance: LANSOPRAZOLE
     Route: 048
     Dates: start: 20160412
  21. PARACETAMOL [Concomitant]
     Active Substance: ACETAMINOPHEN
     Indication: LOWER RESPIRATORY TRACT INFECTION
     Route: 048
     Dates: start: 20160714
  22. DIGOXIN. [Concomitant]
     Active Substance: DIGOXIN
     Route: 048
  23. RAMIPRIL. [Concomitant]
     Active Substance: RAMIPRIL
     Route: 048
     Dates: start: 20160412
  24. DOCUSATE [Concomitant]
     Active Substance: DOCUSATE
     Indication: LOWER RESPIRATORY TRACT INFECTION
     Route: 048
     Dates: start: 201603
  25. DIGOXIN. [Concomitant]
     Active Substance: DIGOXIN
     Route: 048
     Dates: start: 20150519
  26. BENDROFLUMETHIAZIDE [Concomitant]
     Active Substance: BENDROFLUMETHIAZIDE
     Indication: HYPERTENSION
     Route: 048
     Dates: start: 20160412
  27. FLUCLOXACILLIN [Concomitant]
     Active Substance: FLUCLOXACILLIN
     Indication: SKIN LACERATION
     Route: 048
     Dates: start: 20160630, end: 20160707
  28. EXEMESTANE. [Suspect]
     Active Substance: EXEMESTANE
     Indication: BREAST CANCER METASTATIC
     Route: 048
     Dates: start: 20160113
  29. FUROSEMIDE. [Concomitant]
     Active Substance: FUROSEMIDE
     Route: 048
  30. CODEINE PHOSPHATE/PARACETAMOL [Concomitant]
     Active Substance: ACETAMINOPHEN\CODEINE PHOSPHATE
     Indication: CELLULITIS
     Route: 048
     Dates: start: 20150716
  31. PARACETAMOL [Concomitant]
     Active Substance: ACETAMINOPHEN
     Indication: ABDOMINAL PAIN
     Route: 048
     Dates: start: 20160714
  32. LETROZOLE. [Suspect]
     Active Substance: LETROZOLE
     Indication: BREAST CANCER METASTATIC
     Route: 048
     Dates: start: 20150819, end: 20160113
  33. DENOSUMAB [Suspect]
     Active Substance: DENOSUMAB
     Indication: BREAST CANCER METASTATIC
     Route: 058
     Dates: start: 20150602
  34. FULVESTRANT. [Suspect]
     Active Substance: FULVESTRANT
     Indication: BREAST CANCER METASTATIC
     Route: 058
     Dates: start: 20150331, end: 20150728
  35. TRASTUZUMAB. [Suspect]
     Active Substance: TRASTUZUMAB
     Indication: BREAST CANCER METASTATIC
     Route: 058
     Dates: start: 20150819, end: 20160323
  36. LACTULOSE. [Concomitant]
     Active Substance: LACTULOSE
     Indication: PROPHYLAXIS
     Route: 048
     Dates: start: 20150716
  37. ADCAL D3 [Concomitant]
     Active Substance: CALCIUM CARBONATE\CHOLECALCIFEROL
     Route: 048
     Dates: start: 201604
  38. ACETYLSALICYLIC ACID [Concomitant]
     Active Substance: ASPIRIN
     Route: 048
     Dates: start: 20150519

REACTIONS (4)
  - Ejection fraction decreased [Not Recovered/Not Resolved]
  - Cerebrovascular accident [Recovered/Resolved]
  - Cellulitis [Recovered/Resolved]
  - Hypertension [Not Recovered/Not Resolved]

NARRATIVE: CASE EVENT DATE: 20150705
